FAERS Safety Report 6813123-4 (Version None)
Quarter: 2010Q3

REPORT INFORMATION
  Report Type: 
  Country: None (occurrence: None)
  Receive Date: 20100701
  Receipt Date: 20100623
  Transmission Date: 20110219
  Serious: Yes (Other)
  Sender: FDA-Public Use
  Company Number: AU-PFIZER INC-2010079262

PATIENT
  Sex: Female

DRUGS (5)
  1. XALATAN [Suspect]
     Indication: GLAUCOMA
     Dosage: (1 SMALL AND 1 LARGE DROP FOR A TOTAL OF 2 DROPS) IN BOTH EYES
     Route: 047
     Dates: start: 20100623
  2. KARVEA [Concomitant]
     Dosage: 300 MG, 1X/DAY
  3. CARTIA XT [Concomitant]
     Dosage: 100 MG, 1X/DAY
  4. FISH OIL [Concomitant]
  5. CALCIUM WITH VITAMIN D [Concomitant]

REACTIONS (7)
  - ASTHENOPIA [None]
  - EYE DISCHARGE [None]
  - FATIGUE [None]
  - HYPOAESTHESIA [None]
  - LACRIMATION INCREASED [None]
  - NAUSEA [None]
  - PERIPHERAL COLDNESS [None]
